FAERS Safety Report 23874311 (Version 2)
Quarter: 2024Q3

REPORT INFORMATION
  Report Type: Spontaneous
  Country: JP (occurrence: JP)
  Receive Date: 20240520
  Receipt Date: 20240812
  Transmission Date: 20241017
  Serious: Yes (Other)
  Sender: PFIZER
  Company Number: JP-ONO-2024JP010564

PATIENT

DRUGS (3)
  1. BRAFTOVI [Suspect]
     Active Substance: ENCORAFENIB
     Indication: Colon cancer
     Dosage: UNK
     Route: 048
  2. MEKTOVI [Suspect]
     Active Substance: BINIMETINIB
     Indication: Colon cancer
     Dosage: UNK
     Route: 048
  3. CETUXIMAB [Concomitant]
     Active Substance: CETUXIMAB
     Indication: Colon cancer
     Dosage: UNK
     Route: 065

REACTIONS (3)
  - Nephritis [Recovered/Resolved]
  - Constipation [Recovered/Resolved]
  - Abdominal discomfort [Unknown]
